FAERS Safety Report 11392552 (Version 1)
Quarter: 2015Q3

REPORT INFORMATION
  Report Type: Spontaneous
  Country: US (occurrence: US)
  Receive Date: 20150818
  Receipt Date: 20150818
  Transmission Date: 20151125
  Serious: No
  Sender: FDA-Public Use
  Company Number: US-TEVA-585241USA

PATIENT
  Sex: Male

DRUGS (2)
  1. NUVIGIL [Suspect]
     Active Substance: ARMODAFINIL
     Indication: POOR QUALITY SLEEP
  2. MODAFINIL. [Suspect]
     Active Substance: MODAFINIL
     Indication: POOR QUALITY SLEEP

REACTIONS (2)
  - Balance disorder [Unknown]
  - Sleep disorder [Unknown]
